FAERS Safety Report 4940960-3 (Version None)
Quarter: 2006Q1

REPORT INFORMATION
  Report Type: 
  Country: None (occurrence: None)
  Receive Date: 20060307
  Receipt Date: 20060224
  Transmission Date: 20060701
  Serious: Yes (Other)
  Sender: FDA-Public Use
  Company Number: 2006028654

PATIENT
  Age: 71 Year
  Sex: Female
  Weight: 87.9978 kg

DRUGS (2)
  1. LYRICA [Suspect]
     Indication: CERVICOBRACHIAL SYNDROME
     Dosage: 50 MG, 75 MG (2 IN 1 D)
     Dates: start: 20060101
  2. ALEVE [Concomitant]

REACTIONS (5)
  - CERVICAL SPINAL STENOSIS [None]
  - DYSPNOEA [None]
  - THYROID NEOPLASM [None]
  - VISION BLURRED [None]
  - VISUAL ACUITY REDUCED [None]
